FAERS Safety Report 15699158 (Version 9)
Quarter: 2019Q1

REPORT INFORMATION
  Report Type: Spontaneous
  Country: US (occurrence: US)
  Receive Date: 20181207
  Receipt Date: 20190220
  Transmission Date: 20190417
  Serious: Yes (Hospitalization)
  Sender: FDA-Public Use
  Company Number: US-PFIZER INC-2018502542

PATIENT
  Age: 49 Year
  Sex: Female
  Weight: 63.49 kg

DRUGS (6)
  1. XANAX [Suspect]
     Active Substance: ALPRAZOLAM
     Dosage: 2 MG, AS NEEDED (3 TIMES DAILY)
  2. TRINTELLIX [Concomitant]
     Active Substance: VORTIOXETINE HYDROBROMIDE
     Dosage: 10 MG, DAILY
  3. BUSPAR [Concomitant]
     Active Substance: BUSPIRONE HYDROCHLORIDE
     Dosage: UNK
  4. XANAX [Suspect]
     Active Substance: ALPRAZOLAM
     Dosage: UNK
     Route: 042
  5. XANAX [Suspect]
     Active Substance: ALPRAZOLAM
     Indication: STRESS
     Dosage: 0.5 DF, 2X/DAY (TAKES 1/2 NOW AND 1/2 LATER)
  6. XANAX [Suspect]
     Active Substance: ALPRAZOLAM
     Indication: ANXIETY
     Dosage: 2 MG, 2X/DAY

REACTIONS (11)
  - Eye disorder [Unknown]
  - Product prescribing error [Unknown]
  - Visual impairment [Unknown]
  - Anxiety [Unknown]
  - Urticaria [Unknown]
  - Withdrawal syndrome [Unknown]
  - Pharyngeal oedema [Unknown]
  - Intentional product misuse [Unknown]
  - Nervousness [Unknown]
  - Disturbance in attention [Unknown]
  - Vision blurred [Unknown]
